FAERS Safety Report 5673024-4 (Version None)
Quarter: 2008Q1

REPORT INFORMATION
  Report Type: 
  Country: None (occurrence: None)
  Receive Date: 20080319
  Receipt Date: 20080109
  Transmission Date: 20080703
  Serious: No
  Sender: FDA-Public Use
  Company Number: US-ASTRAZENECA-2007UW28958

PATIENT
  Age: 67 Year
  Sex: Female
  Weight: 57.2 kg

DRUGS (6)
  1. SYMBICORT [Suspect]
     Indication: ASTHMA
     Dosage: 80/4.5 MCG 2 PUFFS BID
     Route: 055
     Dates: start: 20070801
  2. SYMBICORT [Suspect]
     Indication: BRONCHITIS
     Dosage: 80/4.5 MCG 2 PUFFS BID
     Route: 055
     Dates: start: 20070801
  3. XANAX [Concomitant]
  4. HERBS [Concomitant]
  5. CENTRUM [Concomitant]
  6. ADVAIR DISKUS 100/50 [Concomitant]

REACTIONS (6)
  - DIZZINESS [None]
  - HEART RATE INCREASED [None]
  - NAUSEA [None]
  - PAIN [None]
  - PARAESTHESIA [None]
  - PRURITUS [None]
